FAERS Safety Report 10232759 (Version 1)
Quarter: 2014Q2

REPORT INFORMATION
  Report Type: Spontaneous
  Country: US (occurrence: None)
  Receive Date: 20140506
  Receipt Date: 20140506
  Transmission Date: 20141212
  Serious: Yes (Death, Other)
  Sender: FDA-Public Use
  Company Number: 1245690

PATIENT
  Age: 58 Year
  Sex: Female

DRUGS (4)
  1. AVASTIN (BEVACIZUMAB) (INFUSION, SOLUTION) [Suspect]
     Indication: PRODUCT USED FOR UNKNOWN INDICATION
  2. XARELTO (RIVAROXABAN) [Suspect]
     Indication: PRODUCT USED FOR UNKNOWN INDICATION
     Route: 048
  3. CARBOPLATIN (CARBOPLATIN) [Concomitant]
  4. ALIMTA (PEMETREXED DISODIUM0 [Concomitant]

REACTIONS (4)
  - Pulmonary haemorrhage [None]
  - Pulmonary embolism [None]
  - Neoplasm [None]
  - Ill-defined disorder [None]
